FAERS Safety Report 21197753 (Version 6)
Quarter: 2023Q1

REPORT INFORMATION
  Report Type: Report from Study
  Country: ES (occurrence: ES)
  Receive Date: 20220810
  Receipt Date: 20230217
  Transmission Date: 20230418
  Serious: Yes (Death, Hospitalization)
  Sender: FDA-Public Use
  Company Number: ES-GILEAD-2022-0592867

PATIENT
  Sex: Male

DRUGS (22)
  1. SACITUZUMAB GOVITECAN [Suspect]
     Active Substance: SACITUZUMAB GOVITECAN
     Indication: Non-small cell lung cancer
     Dosage: 580 MG
     Route: 042
     Dates: start: 20220722, end: 20220722
  2. SACITUZUMAB GOVITECAN [Suspect]
     Active Substance: SACITUZUMAB GOVITECAN
     Dosage: 580 MG
     Route: 042
     Dates: start: 20220729, end: 20220729
  3. PREGABALIN [Concomitant]
     Active Substance: PREGABALIN
     Indication: Periarthritis
     Route: 048
  4. ENOXAPARIN [Concomitant]
     Active Substance: ENOXAPARIN
     Indication: Irritable bowel syndrome
     Route: 058
  5. VILANTEROL TRIFENATATE [Concomitant]
     Active Substance: VILANTEROL TRIFENATATE
     Indication: Chronic obstructive pulmonary disease
     Route: 055
     Dates: start: 202107
  6. FLUTICASONE FUROATE [Concomitant]
     Active Substance: FLUTICASONE FUROATE
     Indication: Chronic obstructive pulmonary disease
     Route: 055
     Dates: start: 202107
  7. CODEINE [Concomitant]
     Active Substance: CODEINE
     Indication: Bronchitis chronic
     Route: 048
  8. MORPHINE [Concomitant]
     Active Substance: MORPHINE
     Indication: Headache
     Route: 048
  9. DIAZEPAM [Concomitant]
     Active Substance: DIAZEPAM
     Indication: Prophylaxis
     Route: 048
  10. MAGNESIUM [Concomitant]
     Active Substance: MAGNESIUM
     Indication: Prophylaxis
     Route: 048
     Dates: start: 202107
  11. OMEPRAZOLE [Concomitant]
     Active Substance: OMEPRAZOLE
     Indication: Prophylaxis
     Route: 048
  12. CHOLECALCIFEROL [Concomitant]
     Active Substance: CHOLECALCIFEROL
     Indication: Prophylaxis
     Route: 048
     Dates: start: 2021
  13. PREDNISONE [Concomitant]
     Active Substance: PREDNISONE
     Indication: Bronchitis chronic
     Route: 048
  14. DEXKETOPROFEN [Concomitant]
     Active Substance: DEXKETOPROFEN
     Indication: Periarthritis
     Route: 048
  15. ACETAMINOPHEN [Concomitant]
     Active Substance: ACETAMINOPHEN
     Indication: Headache
     Dosage: UNK
     Route: 048
  16. ACETAMINOPHEN [Concomitant]
     Active Substance: ACETAMINOPHEN
     Indication: Neutropenic colitis
     Dosage: UNK
     Route: 041
     Dates: start: 20220805, end: 20220811
  17. ACETAMINOPHEN [Concomitant]
     Active Substance: ACETAMINOPHEN
     Indication: Prophylaxis
     Dosage: UNK
     Dates: start: 20220722, end: 20220729
  18. HYDROCORTISONE [Concomitant]
     Active Substance: HYDROCORTISONE
     Indication: Neutropenic colitis
     Route: 041
     Dates: start: 20220805, end: 20220809
  19. PHYTONADIONE [Concomitant]
     Active Substance: PHYTONADIONE
     Indication: Coagulopathy
     Route: 041
     Dates: start: 20220805, end: 20220805
  20. PANTOPRAZOLE [Concomitant]
     Active Substance: PANTOPRAZOLE
     Indication: Neutropenic colitis
     Route: 042
     Dates: start: 20220805, end: 20220810
  21. TINZAPARIN [Concomitant]
     Active Substance: TINZAPARIN
     Indication: Coagulopathy
     Route: 058
     Dates: start: 20220805, end: 20220809
  22. DEXCHLORPHENIRAMINE [Concomitant]
     Active Substance: DEXCHLORPHENIRAMINE
     Indication: Prophylaxis
     Route: 042
     Dates: start: 20220722, end: 20220729

REACTIONS (2)
  - Neutropenic colitis [Fatal]
  - Neutropenic colitis [Not Recovered/Not Resolved]

NARRATIVE: CASE EVENT DATE: 20220805
